FAERS Safety Report 9007871 (Version 1)
Quarter: 2013Q1

REPORT INFORMATION
  Report Type: Spontaneous
  Country: US (occurrence: US)
  Receive Date: 20130111
  Receipt Date: 20130111
  Transmission Date: 20140127
  Serious: Yes (Life-Threatening, Other)
  Sender: FDA-Public Use
  Company Number: US-009507513-0909USA03413

PATIENT
  Age: 9 Year
  Sex: Male
  Weight: 38.56 kg

DRUGS (1)
  1. SINGULAIR [Suspect]
     Indication: BRONCHITIS
     Dosage: 5 MG, QD
     Route: 048
     Dates: start: 20090302, end: 20090308

REACTIONS (4)
  - Apnoea [Unknown]
  - Convulsion [Unknown]
  - Emotional disorder [Unknown]
  - Stress [Unknown]
